FAERS Safety Report 4696167-0 (Version None)
Quarter: 2005Q2

REPORT INFORMATION
  Report Type: 
  Country: None (occurrence: None)
  Receive Date: 20050620
  Receipt Date: 20050607
  Transmission Date: 20051028
  Serious: Yes (Life-Threatening, Hospitalization, Disabling)
  Sender: FDA-Public Use
  Company Number: 2005083109

PATIENT
  Age: 52 Year
  Sex: Female

DRUGS (13)
  1. FRAGMIN [Suspect]
     Dosage: 5000 I.U. (5000 I.U., 1 IN 1 D), SUBCUTANEOUS
     Route: 058
     Dates: start: 20050228, end: 20050313
  2. VOLTAREN [Suspect]
     Indication: THROMBOSIS PROPHYLAXIS
  3. ALL OTHER THERAPEUTIC PRODUCTS (ALL OTHER THERAPEUTIC PRODUCTS) [Concomitant]
  4. OLFEN (DICLOFENAC SODIUM) [Concomitant]
  5. STILNOX (ZOLPIDEM) [Concomitant]
  6. ACETALGINE (PARACETAMOL) [Concomitant]
  7. NAROPIN [Concomitant]
  8. BUPIVACAINE [Concomitant]
  9. MEPIVACIANE (MEPIVACAINE) [Concomitant]
  10. PROPOFOL [Concomitant]
  11. ULTIVA [Concomitant]
  12. DICLOFENAC SODIUM [Concomitant]
  13. ELTROXIN (LEVOTHYROXINE SODIUM) [Concomitant]

REACTIONS (1)
  - JAUNDICE CHOLESTATIC [None]
